FAERS Safety Report 5836291-X (Version None)
Quarter: 2008Q3

REPORT INFORMATION
  Report Type: 
  Country: None (occurrence: None)
  Receive Date: 20080801
  Receipt Date: 20080423
  Transmission Date: 20090109
  Serious: Yes (Hospitalization)
  Sender: FDA-Public Use
  Company Number: 170661USA

PATIENT
  Age: 67 Year
  Sex: Male
  Weight: 68.0396 kg

DRUGS (6)
  1. ZOLPIDEM TARTRATE [Suspect]
     Indication: SLEEP DISORDER
     Dosage: 1 TABLET EVERY 10 DAYS (10MG),ORAL
     Route: 048
     Dates: start: 20080201, end: 20080219
  2. TRAMADOL HCL [Concomitant]
  3. OMEPRAZOLE [Concomitant]
  4. LOVASTATIN [Concomitant]
  5. TAMSULOSIN HCL [Concomitant]
  6. ATORVASTATIN [Concomitant]

REACTIONS (13)
  - ARRHYTHMIA [None]
  - DIPLOPIA [None]
  - DIZZINESS [None]
  - GAIT DISTURBANCE [None]
  - HEART RATE DECREASED [None]
  - HYPERHIDROSIS [None]
  - HYPERTENSION [None]
  - HYPOTENSION [None]
  - INCOHERENT [None]
  - MEMORY IMPAIRMENT [None]
  - PALLOR [None]
  - SEDATION [None]
  - WRONG DRUG ADMINISTERED [None]
